FAERS Safety Report 4339959-X (Version None)
Quarter: 2004Q2

REPORT INFORMATION
  Report Type: 
  Country: None (occurrence: None)
  Receive Date: 20040412
  Receipt Date: 20040401
  Transmission Date: 20050107
  Serious: Yes (Other)
  Sender: FDA-Public Use
  Company Number: IT-JNJFOC-20040103144

PATIENT
  Age: 66 Year
  Sex: Female

DRUGS (7)
  1. REMICADE [Suspect]
     Indication: RHEUMATOID ARTHRITIS
     Dosage: 200 MG , INTRAVENOUS
     Route: 042
     Dates: start: 20040114, end: 20040114
  2. MEDROL [Concomitant]
  3. CYTOTEC [Concomitant]
  4. DIFOSFONAL (CLODRONATE DISODIUM) [Concomitant]
  5. PROZAC [Concomitant]
  6. METACEN (INDOMETACIN) [Concomitant]
  7. DISEON (ALFACALCIDOL) [Concomitant]

REACTIONS (2)
  - ANGIONEUROTIC OEDEMA [None]
  - URTICARIA [None]
